FAERS Safety Report 5700999-7 (Version None)
Quarter: 2008Q2

REPORT INFORMATION
  Report Type: 
  Country: None (occurrence: None)
  Receive Date: 20080410
  Receipt Date: 20080403
  Transmission Date: 20081010
  Serious: Yes (Hospitalization)
  Sender: FDA-Public Use
  Company Number: US-JNJFOC-20080401726

PATIENT
  Age: 42 Year
  Sex: Female

DRUGS (1)
  1. INVEGA [Suspect]
     Indication: MAJOR DEPRESSION
     Route: 048

REACTIONS (3)
  - CONVULSION [None]
  - INTENTIONAL DRUG MISUSE [None]
  - SYNCOPE [None]
